FAERS Safety Report 24869331 (Version 1)
Quarter: 2025Q1

REPORT INFORMATION
  Report Type: Spontaneous
  Country: CN (occurrence: CN)
  Receive Date: 20250121
  Receipt Date: 20250121
  Transmission Date: 20250409
  Serious: Yes (Other)
  Sender: ELI LILLY AND COMPANY
  Company Number: CN-ELI_LILLY_AND_COMPANY-CN202501010649

PATIENT
  Age: 83 Year
  Sex: Male
  Weight: 69 kg

DRUGS (3)
  1. HUMALOG MIX75/25 [Suspect]
     Active Substance: INSULIN LISPRO
     Indication: Diabetes mellitus
     Dosage: 15 U, BID
     Route: 058
  2. CANAGLIFLOZIN [Concomitant]
     Active Substance: CANAGLIFLOZIN
     Indication: Product used for unknown indication
  3. GLUCOBAY [Concomitant]
     Active Substance: ACARBOSE
     Indication: Product used for unknown indication

REACTIONS (6)
  - Retinopathy [Unknown]
  - Diabetes mellitus inadequate control [Unknown]
  - Incorrect dose administered [Unknown]
  - COVID-19 [Unknown]
  - Dysarthria [Unknown]
  - Gait disturbance [Unknown]
